FAERS Safety Report 14579414 (Version 2)
Quarter: 2018Q2

REPORT INFORMATION
  Report Type: Report from Study
  Country: US (occurrence: US)
  Receive Date: 20180227
  Receipt Date: 20180510
  Transmission Date: 20180711
  Serious: Yes (Death, Hospitalization)
  Sender: FDA-Public Use
  Company Number: US-ACTELION-A-NJ2017-156664

PATIENT
  Age: 63 Year
  Sex: Male

DRUGS (13)
  1. B COMPLEX WITH FOLIC ACID [Concomitant]
  2. ERGOCALCIFEROL. [Concomitant]
     Active Substance: ERGOCALCIFEROL
     Dosage: 50000 U, UNK
  3. LEVOTHYROXINE. [Concomitant]
     Active Substance: LEVOTHYROXINE
  4. OMEPRAZOLE. [Concomitant]
     Active Substance: OMEPRAZOLE
  5. INSULIN REGULAR HM [Concomitant]
     Active Substance: INSULIN NOS
  6. SEVELAMER [Concomitant]
     Active Substance: SEVELAMER
     Dosage: 800 MG, UNK
  7. ASPIRIN (E.C.) [Concomitant]
     Active Substance: ASPIRIN
     Dosage: 81 MG, UNK
  8. FLUOXETINE [Concomitant]
     Active Substance: FLUOXETINE HYDROCHLORIDE
     Dosage: 20 MG, UNK
  9. PROBIOTIC [Concomitant]
     Active Substance: PROBIOTICS NOS
  10. SILDENAFIL. [Concomitant]
     Active Substance: SILDENAFIL
     Dosage: 20 MG, UNK
  11. UPTRAVI [Suspect]
     Active Substance: SELEXIPAG
     Indication: PULMONARY HYPERTENSION
     Dosage: 1600 MCG, BID
     Route: 048
     Dates: start: 20170201, end: 20180204
  12. METOPROLOL. [Concomitant]
     Active Substance: METOPROLOL
  13. CINACALCET. [Concomitant]
     Active Substance: CINACALCET
     Dosage: 30 MG, UNK

REACTIONS (14)
  - Cardiac failure [Fatal]
  - Ascites [Unknown]
  - Diarrhoea [Unknown]
  - Nausea [Unknown]
  - Abdominal discomfort [Unknown]
  - Tooth abscess [Unknown]
  - Pain in jaw [Unknown]
  - Vomiting [Unknown]
  - Fluid overload [Unknown]
  - Fluid retention [Unknown]
  - Flushing [Unknown]
  - Hypotension [Unknown]
  - Myalgia [Unknown]
  - Headache [Unknown]

NARRATIVE: CASE EVENT DATE: 2017
